FAERS Safety Report 5067161-5 (Version None)
Quarter: 2006Q3

REPORT INFORMATION
  Report Type: 
  Country: None (occurrence: None)
  Receive Date: 20060801
  Receipt Date: 20060717
  Transmission Date: 20061208
  Serious: Yes (Other)
  Sender: FDA-Public Use
  Company Number: CO-BOEHRINGER INGELHEIM PHARMACEUTICALS, INC.-2006-BP-08326CL

PATIENT
  Sex: Male

DRUGS (6)
  1. MICARDIS [Suspect]
     Indication: HYPERTENSION
     Route: 048
     Dates: start: 20001101
  2. AMLODIPINO (AMLODIPINE) [Concomitant]
     Indication: HYPERTENSION
     Route: 048
     Dates: start: 20000730
  3. BETALOC ZOK [Concomitant]
     Indication: HYPERTENSION
     Route: 048
     Dates: start: 20000101
  4. HIDROCLOROTIAZIDA (HYDROCLOROTIAZIDE) [Concomitant]
     Indication: HYPERTENSION
     Route: 048
     Dates: start: 20000101
  5. ASPIRINA [Concomitant]
     Route: 048
     Dates: start: 20000101
  6. ATORVASTATINA (ATORVASTATINE) [Concomitant]
     Indication: BLOOD CHOLESTEROL
     Route: 048
     Dates: start: 20030101

REACTIONS (1)
  - LEUKOPENIA [None]
